FAERS Safety Report 16949268 (Version 1)
Quarter: 2019Q4

REPORT INFORMATION
  Report Type: Spontaneous
  Country: US (occurrence: US)
  Receive Date: 20191023
  Receipt Date: 20191023
  Transmission Date: 20200122
  Serious: No
  Sender: FDA-Public Use
  Company Number: US-ELI_LILLY_AND_COMPANY-US201910006017

PATIENT
  Sex: Female

DRUGS (2)
  1. DULOXETINE HYDROCHLORIDE. [Suspect]
     Active Substance: DULOXETINE HYDROCHLORIDE
     Indication: FATIGUE
  2. DULOXETINE HYDROCHLORIDE. [Suspect]
     Active Substance: DULOXETINE HYDROCHLORIDE
     Indication: FIBROMYALGIA
     Dosage: UNK UNK, UNKNOWN
     Route: 065
     Dates: start: 2012, end: 201909

REACTIONS (11)
  - Mental impairment [Unknown]
  - Drug withdrawal syndrome [Unknown]
  - Cough [Unknown]
  - Somnolence [Unknown]
  - Fatigue [Unknown]
  - Pain [Unknown]
  - Feeling abnormal [Unknown]
  - Oropharyngeal pain [Unknown]
  - Lethargy [Unknown]
  - Intentional product misuse [Unknown]
  - Influenza [Unknown]

NARRATIVE: CASE EVENT DATE: 20191003
